FAERS Safety Report 10834783 (Version 1)
Quarter: 2015Q1

REPORT INFORMATION
  Report Type: Report from Study
  Country: US (occurrence: US)
  Receive Date: 20150219
  Receipt Date: 20150219
  Transmission Date: 20150721
  Serious: No
  Sender: FDA-Public Use
  Company Number: US-ABBVIE-14P-163-1207245-00

PATIENT
  Age: 48 Year
  Sex: Female

DRUGS (6)
  1. PREDNISONE. [Suspect]
     Active Substance: PREDNISONE
     Indication: PRODUCT USED FOR UNKNOWN INDICATION
  2. PREDNISONE. [Suspect]
     Active Substance: PREDNISONE
     Dosage: TAPER
     Dates: start: 20140331
  3. HUMIRA [Suspect]
     Active Substance: ADALIMUMAB
     Indication: COLITIS ULCERATIVE
     Dates: start: 20131226
  4. HUMIRA [Suspect]
     Active Substance: ADALIMUMAB
     Dates: start: 20140421
  5. PROTONIX [Concomitant]
     Active Substance: PANTOPRAZOLE SODIUM
     Indication: HYPERCHLORHYDRIA
     Dates: start: 20140207
  6. PROTONIX [Concomitant]
     Active Substance: PANTOPRAZOLE SODIUM
     Indication: GASTRIC DISORDER

REACTIONS (30)
  - Asthenia [Not Recovered/Not Resolved]
  - Vomiting [Not Recovered/Not Resolved]
  - Chills [Recovered/Resolved]
  - Blepharospasm [Recovered/Resolved]
  - Cough [Recovered/Resolved]
  - Food poisoning [Recovered/Resolved]
  - Injection site bruising [Recovered/Resolved]
  - Nausea [Not Recovered/Not Resolved]
  - Drug ineffective [Not Recovered/Not Resolved]
  - Migraine [Not Recovered/Not Resolved]
  - Injection site pain [Not Recovered/Not Resolved]
  - Nausea [Recovered/Resolved]
  - Diarrhoea [Not Recovered/Not Resolved]
  - Flushing [Not Recovered/Not Resolved]
  - Pneumonia [Recovered/Resolved]
  - Eating disorder [Not Recovered/Not Resolved]
  - Drug ineffective [Unknown]
  - Rectal haemorrhage [Not Recovered/Not Resolved]
  - Pain [Recovered/Resolved]
  - Pyrexia [Recovered/Resolved]
  - Lower respiratory tract infection [Recovered/Resolved]
  - Gastrooesophageal reflux disease [Not Recovered/Not Resolved]
  - Pyrexia [Not Recovered/Not Resolved]
  - Asthenopia [Not Recovered/Not Resolved]
  - Influenza like illness [Recovered/Resolved]
  - Colitis ulcerative [Not Recovered/Not Resolved]
  - Injection site pain [Recovered/Resolved]
  - Abdominal pain [Not Recovered/Not Resolved]
  - Vomiting [Recovered/Resolved]
  - Irritable bowel syndrome [Unknown]

NARRATIVE: CASE EVENT DATE: 201312
